FAERS Safety Report 12765668 (Version 1)
Quarter: 2016Q3

REPORT INFORMATION
  Report Type: Spontaneous
  Country: US (occurrence: US)
  Receive Date: 20160915
  Receipt Date: 20160915
  Transmission Date: 20161109
  Serious: Yes (Death)
  Sender: FDA-Public Use
  Company Number: None

PATIENT
  Age: 67 Year
  Sex: Female

DRUGS (1)
  1. IBRANCE [Suspect]
     Active Substance: PALBOCICLIB
     Indication: NEOPLASM MALIGNANT
     Dosage: 75 MG DAILY ON DAYS 1-21 BY MOUTH
     Route: 048
     Dates: start: 20160307, end: 20160709

REACTIONS (2)
  - Neoplasm malignant [None]
  - Blood pressure decreased [None]

NARRATIVE: CASE EVENT DATE: 20160709
